FAERS Safety Report 5314807-X (Version None)
Quarter: 2007Q2

REPORT INFORMATION
  Report Type: 
  Country: None (occurrence: None)
  Receive Date: 20070502
  Receipt Date: 20070424
  Transmission Date: 20071010
  Serious: Yes (Life-Threatening, Hospitalization)
  Sender: FDA-Public Use
  Company Number: DE-GLAXOSMITHKLINE-D0052684A

PATIENT
  Age: 54 Year
  Sex: Female

DRUGS (2)
  1. ZOVIRAX [Suspect]
     Indication: HERPES SIMPLEX
     Route: 048
     Dates: start: 20040101
  2. CLINDAMYCIN [Concomitant]
     Indication: TOOTH DISORDER
     Route: 048

REACTIONS (5)
  - BRAIN STEM SYNDROME [None]
  - CEREBROVASCULAR ACCIDENT [None]
  - DYSPHAGIA [None]
  - INTENTIONAL DRUG MISUSE [None]
  - VASCULITIS CEREBRAL [None]
